FAERS Safety Report 8871881 (Version 1)
Quarter: 2012Q4

REPORT INFORMATION
  Report Type: 
  Country: US (occurrence: US)
  Receive Date: 20121029
  Receipt Date: 20121029
  Transmission Date: 20130627
  Serious: Yes (Hospitalization, Other)
  Sender: FDA-Public Use
  Company Number: US-JNJFOC-20121009294

PATIENT
  Sex: Female
  Weight: 72.58 kg

DRUGS (20)
  1. SANDOZ FENTANYL TRANSDERMAL SYSTEM [Suspect]
     Indication: BACK PAIN
     Route: 062
     Dates: start: 2011
  2. SANDOZ FENTANYL TRANSDERMAL SYSTEM [Suspect]
     Indication: CHEST PAIN
     Route: 062
     Dates: start: 2011
  3. SANDOZ FENTANYL TRANSDERMAL SYSTEM [Suspect]
     Indication: BACK PAIN
     Route: 062
     Dates: start: 2007
  4. SANDOZ FENTANYL TRANSDERMAL SYSTEM [Suspect]
     Indication: BACK PAIN
     Route: 062
     Dates: start: 2006
  5. SANDOZ FENTANYL TRANSDERMAL SYSTEM [Suspect]
     Indication: BACK PAIN
     Route: 062
     Dates: start: 2005
  6. SANDOZ FENTANYL TRANSDERMAL SYSTEM [Suspect]
     Indication: BACK PAIN
     Route: 062
     Dates: start: 2005
  7. SANDOZ FENTANYL TRANSDERMAL SYSTEM [Suspect]
     Indication: CHEST PAIN
     Route: 062
     Dates: start: 2005
  8. SANDOZ FENTANYL TRANSDERMAL SYSTEM [Suspect]
     Indication: CHEST PAIN
     Route: 062
     Dates: start: 2007
  9. SANDOZ FENTANYL TRANSDERMAL SYSTEM [Suspect]
     Indication: CHEST PAIN
     Route: 062
     Dates: start: 2005
  10. SANDOZ FENTANYL TRANSDERMAL SYSTEM [Suspect]
     Indication: CHEST PAIN
     Route: 062
     Dates: start: 2006
  11. UNSPECIFIED FENTANYL TRANSDERMAL SYSTEM [Suspect]
     Indication: BACK PAIN
     Route: 062
     Dates: start: 2007
  12. UNSPECIFIED FENTANYL TRANSDERMAL SYSTEM [Suspect]
     Indication: BACK PAIN
     Route: 062
     Dates: start: 2006
  13. UNSPECIFIED FENTANYL TRANSDERMAL SYSTEM [Suspect]
     Indication: BACK PAIN
     Route: 062
     Dates: start: 2005
  14. UNSPECIFIED FENTANYL TRANSDERMAL SYSTEM [Suspect]
     Indication: BACK PAIN
     Route: 062
     Dates: start: 2005
  15. UNSPECIFIED FENTANYL TRANSDERMAL SYSTEM [Suspect]
     Indication: CHEST PAIN
     Route: 062
     Dates: start: 2005
  16. UNSPECIFIED FENTANYL TRANSDERMAL SYSTEM [Suspect]
     Indication: CHEST PAIN
     Route: 062
     Dates: start: 2007
  17. UNSPECIFIED FENTANYL TRANSDERMAL SYSTEM [Suspect]
     Indication: CHEST PAIN
     Route: 062
     Dates: start: 2006
  18. UNSPECIFIED FENTANYL TRANSDERMAL SYSTEM [Suspect]
     Indication: CHEST PAIN
     Route: 062
     Dates: start: 2005
  19. NEURONTIN [Concomitant]
     Indication: PAIN MANAGEMENT
     Route: 048
     Dates: start: 2003
  20. ROBAXIN [Concomitant]
     Indication: HYPOTONIA
     Route: 048

REACTIONS (21)
  - Scoliosis [Not Recovered/Not Resolved]
  - Kyphosis [Recovered/Resolved]
  - Weight increased [Not Recovered/Not Resolved]
  - Body height decreased [Not Recovered/Not Resolved]
  - Scoliosis [Not Recovered/Not Resolved]
  - Neuropathy peripheral [Not Recovered/Not Resolved]
  - Nephrolithiasis [Unknown]
  - Calcium deficiency [Unknown]
  - Blood potassium decreased [Unknown]
  - Fluid retention [Not Recovered/Not Resolved]
  - Intervertebral disc compression [Recovered/Resolved]
  - Coma [Recovered/Resolved]
  - Wrong technique in drug usage process [Recovered/Resolved]
  - Rash [Not Recovered/Not Resolved]
  - Insomnia [Not Recovered/Not Resolved]
  - Breakthrough pain [Not Recovered/Not Resolved]
  - Dry eye [Unknown]
  - Irritability [Recovered/Resolved]
  - Wrong technique in drug usage process [Recovered/Resolved]
  - Product quality issue [Unknown]
  - Product quality issue [Unknown]
